FAERS Safety Report 13793487 (Version 2)
Quarter: 2017Q3

REPORT INFORMATION
  Report Type: Spontaneous
  Country: US (occurrence: US)
  Receive Date: 20170726
  Receipt Date: 20170810
  Transmission Date: 20171127
  Serious: Yes (Other)
  Sender: FDA-Public Use
  Company Number: US-BAYER-2017-136725

PATIENT
  Age: 50 Year
  Sex: Male
  Weight: 98 kg

DRUGS (2)
  1. ALEVE [Suspect]
     Active Substance: NAPROXEN SODIUM
     Indication: PAIN
     Dosage: UNK
     Route: 048
  2. ALEVE [Suspect]
     Active Substance: NAPROXEN SODIUM
     Indication: PAIN
     Route: 048
     Dates: start: 1997, end: 2007

REACTIONS (6)
  - Nausea [Unknown]
  - Epistaxis [None]
  - Haematemesis [Unknown]
  - Vomiting [Unknown]
  - Haemoptysis [None]
  - Gastric disorder [Unknown]

NARRATIVE: CASE EVENT DATE: 201603
